FAERS Safety Report 5190804-2 (Version None)
Quarter: 2006Q4

REPORT INFORMATION
  Report Type: 
  Country: None (occurrence: None)
  Receive Date: 20061222
  Receipt Date: 20061220
  Transmission Date: 20070319
  Serious: Yes (Hospitalization)
  Sender: FDA-Public Use
  Company Number: DE-AMGEN-UK204433

PATIENT
  Sex: Male

DRUGS (3)
  1. MIMPARA [Suspect]
  2. BELOC ZOK [Suspect]
  3. DIGITOXIN TAB [Concomitant]

REACTIONS (2)
  - BRADYARRHYTHMIA [None]
  - DRUG INTERACTION [None]
